FAERS Safety Report 19433715 (Version 2)
Quarter: 2021Q3

REPORT INFORMATION
  Report Type: Spontaneous
  Country: RU (occurrence: RU)
  Receive Date: 20210618
  Receipt Date: 20210715
  Transmission Date: 20211014
  Serious: Yes (Other)
  Sender: FDA-Public Use
  Company Number: RU-TEVA-2021-RU-1920198

PATIENT

DRUGS (4)
  1. PREDNISONE. [Concomitant]
     Active Substance: PREDNISONE
     Indication: HODGKIN^S DISEASE RECURRENT
     Dosage: ON DAY 1 TO 4
     Route: 048
  2. ROZUSTIN [Suspect]
     Active Substance: BENDAMUSTINE
     Indication: HODGKIN^S DISEASE RECURRENT
     Dosage: ON DAY 2ND AND 3RD
     Route: 042
  3. VINORELBINE [Concomitant]
     Active Substance: VINORELBINE TARTRATE
     Indication: HODGKIN^S DISEASE RECURRENT
     Dosage: ON DAY 1ST
     Route: 042
  4. GEMCITABINE. [Concomitant]
     Active Substance: GEMCITABINE
     Indication: HODGKIN^S DISEASE RECURRENT
     Dosage: ON DAY 1ST AND 4TH
     Route: 042

REACTIONS (3)
  - Sinusitis [Unknown]
  - Bronchitis chronic [Unknown]
  - Product use in unapproved indication [Unknown]
